FAERS Safety Report 9018504 (Version 1)
Quarter: 2013Q1

REPORT INFORMATION
  Report Type: Spontaneous
  Country: IN (occurrence: IN)
  Receive Date: 20130118
  Receipt Date: 20130118
  Transmission Date: 20140127
  Serious: Yes (Other)
  Sender: FDA-Public Use
  Company Number: IN-JNJFOC-20130107362

PATIENT
  Age: 21 Year
  Sex: Female

DRUGS (5)
  1. TOPIRAMATE [Suspect]
     Indication: GRAND MAL CONVULSION
     Route: 048
  2. TOPIRAMATE [Suspect]
     Indication: GRAND MAL CONVULSION
     Route: 048
  3. CARBAMAZEPINE [Concomitant]
     Indication: GRAND MAL CONVULSION
     Dosage: MORE THAN 5 YEARS
     Route: 065
  4. CARBAMAZEPINE [Concomitant]
     Indication: GRAND MAL CONVULSION
     Route: 065
  5. CLOBAZAM [Concomitant]
     Indication: GRAND MAL CONVULSION
     Route: 065

REACTIONS (1)
  - Eye disorder [Recovering/Resolving]
